FAERS Safety Report 4885462-8 (Version None)
Quarter: 2005Q4

REPORT INFORMATION
  Report Type: 
  Country: None (occurrence: None)
  Receive Date: 20051220
  Receipt Date: 20051019
  Transmission Date: 20060501
  Serious: Yes (Other)
  Sender: FDA-Public Use
  Company Number: HQWYE129220OCT05

PATIENT
  Age: 20 Year
  Sex: Female
  Weight: 127.12 kg

DRUGS (1)
  1. EFFEXOR XR [Suspect]
     Indication: DEPRESSION
     Dosage: 75 MG 1X PER 1 DAY, ORAL; 150 MG 1X PER 1 DAY, ORAL
     Route: 048
     Dates: start: 20040901

REACTIONS (5)
  - AGITATION [None]
  - CONDITION AGGRAVATED [None]
  - DEPRESSION [None]
  - NERVOUSNESS [None]
  - SUICIDAL IDEATION [None]
